FAERS Safety Report 5479336-1 (Version None)
Quarter: 2007Q4

REPORT INFORMATION
  Report Type: 
  Country: None (occurrence: None)
  Receive Date: 20071003
  Receipt Date: 20071003
  Transmission Date: 20080405
  Serious: No
  Sender: FDA-Public Use
  Company Number: None

PATIENT
  Sex: Female

DRUGS (1)
  1. FOSAMAX [Suspect]
     Dosage: ORAL
     Route: 048

REACTIONS (3)
  - ARTHRITIS [None]
  - JOINT STIFFNESS [None]
  - WEIGHT BEARING DIFFICULTY [None]
